FAERS Safety Report 9133128 (Version 1)
Quarter: 2013Q1

REPORT INFORMATION
  Report Type: Spontaneous
  Country: CH (occurrence: CH)
  Receive Date: 20130116
  Receipt Date: 20130116
  Transmission Date: 20140127
  Serious: Yes (Hospitalization)
  Sender: FDA-Public Use
  Company Number: PHHY2012CH124002

PATIENT
  Age: 72 Year
  Sex: Male

DRUGS (2)
  1. LEPONEX [Suspect]
     Dosage: 200 MG, UNK
     Route: 048
     Dates: start: 20120921
  2. HALDOL [Concomitant]
     Dosage: 1 MG, 1/2 TABLET
     Route: 048

REACTIONS (8)
  - Bundle branch block right [Unknown]
  - Ataxia [Unknown]
  - Asthenia [Unknown]
  - Confusional state [Unknown]
  - Agitation [Unknown]
  - Dysarthria [Unknown]
  - Muscle rigidity [Unknown]
  - Wrong drug administered [Unknown]
